FAERS Safety Report 7726606-X (Version None)
Quarter: 2011Q3

REPORT INFORMATION
  Report Type: 
  Country: None (occurrence: None)
  Receive Date: 20110902
  Receipt Date: 20110822
  Transmission Date: 20111222
  Serious: Yes (Hospitalization, Other)
  Sender: FDA-Public Use
  Company Number: DE-ELI_LILLY_AND_COMPANY-DE201108006725

PATIENT
  Weight: 3.17 kg

DRUGS (4)
  1. PROZAC [Suspect]
     Dosage: 20 MG, QD
     Route: 064
  2. CYTOTEC [Concomitant]
     Indication: INDUCED LABOUR
     Route: 064
  3. PROZAC [Suspect]
     Indication: DEPRESSION
     Dosage: 20 MG, QD
     Route: 064
  4. CYTOTEC [Concomitant]
     Route: 064

REACTIONS (4)
  - MATERNAL EXPOSURE DURING PREGNANCY [None]
  - NEONATAL RESPIRATORY DISTRESS SYNDROME [None]
  - PREMATURE BABY [None]
  - HYPERBILIRUBINAEMIA NEONATAL [None]
